FAERS Safety Report 9929282 (Version 2)
Quarter: 2014Q2

REPORT INFORMATION
  Report Type: Spontaneous
  Country: US (occurrence: US)
  Receive Date: 20140227
  Receipt Date: 20140409
  Transmission Date: 20141212
  Serious: Yes (Hospitalization)
  Sender: FDA-Public Use
  Company Number: US-AMGEN-USASP2014013424

PATIENT
  Age: 73 Year
  Sex: Female

DRUGS (19)
  1. EPOGEN [Suspect]
     Indication: NEPHROGENIC ANAEMIA
     Dosage: 10000 UNIT, UNK
     Route: 058
     Dates: start: 20140106
  2. NEPRO                              /07499801/ [Concomitant]
     Dosage: UNK
  3. ATROVENT [Concomitant]
     Dosage: UNK
  4. ALBUTEROL                          /00139501/ [Concomitant]
     Dosage: UNK
  5. COLCHICINE [Concomitant]
     Dosage: UNK
  6. LASIX                              /00032601/ [Concomitant]
     Dosage: UNK
  7. LYRICA [Concomitant]
     Dosage: UNK
  8. POTASSIUM [Concomitant]
     Dosage: UNK
  9. PROTONIX [Concomitant]
     Dosage: UNK
  10. MAGNESIUM [Concomitant]
     Dosage: UNK
  11. VISTARIL                           /00058402/ [Concomitant]
     Dosage: UNK
  12. FOLIC ACID [Concomitant]
     Dosage: UNK
  13. LIPITOR [Concomitant]
     Dosage: UNK
  14. ZOFRAN                             /00955301/ [Concomitant]
     Dosage: UNK UNK, AS NECESSARY
  15. TYLENOL                            /00020001/ [Concomitant]
     Dosage: UNK
  16. DILAUDID [Concomitant]
     Dosage: UNK
  17. NYSTATIN [Concomitant]
     Dosage: UNK
     Route: 061
  18. CEPACOL                            /00104701/ [Concomitant]
     Dosage: UNK
  19. MAALOX                             /00082501/ [Concomitant]
     Dosage: UNK

REACTIONS (3)
  - Paroxysmal nocturnal haemoglobinuria [Unknown]
  - Viral infection [Unknown]
  - Aplasia pure red cell [Unknown]
